FAERS Safety Report 9050463 (Version 1)
Quarter: 2013Q1

REPORT INFORMATION
  Report Type: Report from Study
  Country: DE (occurrence: DE)
  Receive Date: 20130205
  Receipt Date: 20130205
  Transmission Date: 20140127
  Serious: Yes (Death, Hospitalization)
  Sender: FDA-Public Use
  Company Number: DE-ACTELION-A-US2013-78358

PATIENT
  Age: 73 Year
  Sex: Male

DRUGS (2)
  1. VENTAVIS [Suspect]
     Indication: PULMONARY ARTERIAL HYPERTENSION
     Dosage: 5 ?G, QID
     Route: 055
     Dates: start: 20110815
  2. MARCUMAR [Interacting]

REACTIONS (7)
  - Death [Fatal]
  - Cerebral haemorrhage [Unknown]
  - Coma [Unknown]
  - Post procedural haematoma [Unknown]
  - Renal impairment [Unknown]
  - Nosocomial infection [Unknown]
  - Drug interaction [Unknown]
